FAERS Safety Report 4631956-X (Version None)
Quarter: 2005Q2

REPORT INFORMATION
  Report Type: 
  Country: None (occurrence: None)
  Receive Date: 20050411
  Receipt Date: 20050404
  Transmission Date: 20051028
  Serious: Yes (Other)
  Sender: FDA-Public Use
  Company Number: 200513036GDDC

PATIENT
  Sex: Male

DRUGS (1)
  1. LANTUS [Suspect]
     Indication: DIABETES MELLITUS NON-INSULIN-DEPENDENT
     Dosage: DOSE UNIT: UNITS
     Route: 058

REACTIONS (4)
  - ACUTE CORONARY SYNDROME [None]
  - DEEP VEIN THROMBOSIS [None]
  - DIABETES MELLITUS INADEQUATE CONTROL [None]
  - URINARY TRACT INFECTION [None]
